FAERS Safety Report 8128480-9 (Version None)
Quarter: 2012Q1

REPORT INFORMATION
  Report Type: 
  Country: None (occurrence: None)
  Receive Date: 20120103
  Receipt Date: 20111013
  Transmission Date: 20120608
  Serious: No
  Sender: FDA-Public Use
  Company Number: AE-2011-001261

PATIENT
  Age: 56 Year
  Sex: Female

DRUGS (11)
  1. AMLODIPINE [Concomitant]
  2. CALCIUM CARBONATE [Concomitant]
  3. PEGINTERFERON (PEGINTERFERON ALFA-2A) [Concomitant]
  4. BUSPAR (BUSIPRONE HYDROCHLORIDE) [Concomitant]
  5. INVEGA [Concomitant]
  6. INCIVEK [Suspect]
  7. RIBAVIRIN [Concomitant]
  8. ASPIRIN [Concomitant]
  9. LEXAPRO [Concomitant]
  10. TRAZODONE HYDROCHLORIDE [Concomitant]
  11. MAXZIDE [Concomitant]

REACTIONS (1)
  - HYPOCALCAEMIA [None]
